FAERS Safety Report 4967226-X (Version None)
Quarter: 2006Q2

REPORT INFORMATION
  Report Type: 
  Country: None (occurrence: None)
  Receive Date: 20060410
  Receipt Date: 20060404
  Transmission Date: 20061013
  Serious: Yes (Hospitalization)
  Sender: FDA-Public Use
  Company Number: PHBS2006JP05068

PATIENT
  Age: 50 Year
  Sex: Male

DRUGS (2)
  1. RITALIN [Suspect]
     Dosage: 20 MG/D
     Route: 065
  2. ANTIDEPRESSANTS [Concomitant]

REACTIONS (1)
  - CEREBELLAR INFARCTION [None]
